FAERS Safety Report 12106267 (Version 17)
Quarter: 2020Q3

REPORT INFORMATION
  Report Type: Report from Study
  Country: JP (occurrence: JP)
  Receive Date: 20160128
  Receipt Date: 20200911
  Transmission Date: 20201102
  Serious: Yes (Death, Hospitalization, Other)
  Sender: FDA-Public Use
  Company Number: JP-INCYTE CORPORATION-2015IN001690

PATIENT

DRUGS (28)
  1. JAKAVI [Suspect]
     Active Substance: RUXOLITINIB
     Dosage: 10 MG, BID
     Route: 048
     Dates: start: 20150124, end: 20150206
  2. RED CELLS CONCENTRATES?LEUKOCYTES REDUCED [Concomitant]
     Active Substance: HUMAN RED BLOOD CELL
     Indication: MYELOFIBROSIS
     Dosage: 2 IU, UNK
     Route: 065
     Dates: start: 20170213, end: 20170213
  3. HYDREA [Concomitant]
     Active Substance: HYDROXYUREA
     Dosage: 714 MG, UNK
     Route: 048
     Dates: start: 20150123, end: 20150219
  4. HYDREA [Concomitant]
     Active Substance: HYDROXYUREA
     Dosage: 500 MG, UNK
     Route: 048
     Dates: start: 20150220, end: 20150319
  5. JAKAVI [Suspect]
     Active Substance: RUXOLITINIB
     Dosage: 12.5 MG, BID
     Route: 048
     Dates: start: 20151116, end: 20160628
  6. HYDREA [Concomitant]
     Active Substance: HYDROXYUREA
     Dosage: 1143 MG, UNK
     Route: 048
     Dates: start: 20141226, end: 20150113
  7. JAKAVI [Suspect]
     Active Substance: RUXOLITINIB
     Dosage: 7.5 MG, BID
     Route: 048
     Dates: start: 20141213, end: 20141226
  8. PREDONINE [Concomitant]
     Active Substance: PREDNISOLONE
     Indication: MYELOFIBROSIS
     Dosage: 20 MG, UNK
     Route: 048
     Dates: start: 20170215, end: 20170702
  9. RED BLOOD CELLS [Concomitant]
     Active Substance: HUMAN RED BLOOD CELL
     Dosage: 4 IU, UNK
     Route: 065
     Dates: start: 20170614, end: 20170614
  10. JAKAVI [Suspect]
     Active Substance: RUXOLITINIB
     Dosage: 7.5 MG, BID
     Route: 048
     Dates: start: 20150110, end: 20150123
  11. HYDREA [Concomitant]
     Active Substance: HYDROXYUREA
     Dosage: 214 MG, UNK
     Route: 048
     Dates: start: 20150320, end: 20150402
  12. RED BLOOD CELLS [Concomitant]
     Active Substance: HUMAN RED BLOOD CELL
     Indication: MYELOFIBROSIS
     Dosage: 2 IU, UNK
     Route: 065
     Dates: start: 20141024, end: 20150220
  13. JAKAVI [Suspect]
     Active Substance: RUXOLITINIB
     Dosage: 5 MG, BID
     Route: 048
     Dates: start: 20141227, end: 20150109
  14. HYDREA [Concomitant]
     Active Substance: HYDROXYUREA
     Dosage: 1000 MG, UNK
     Route: 048
     Dates: start: 20141212, end: 20141225
  15. PREDONINE [Concomitant]
     Active Substance: PREDNISOLONE
     Indication: MYELOFIBROSIS
     Dosage: 20 MG, UNK
     Route: 048
     Dates: start: 20170215, end: 20170702
  16. JAKAVI [Suspect]
     Active Substance: RUXOLITINIB
     Dosage: 5 MG, BID
     Route: 048
     Dates: start: 20141129, end: 20141212
  17. RED CELLS CONCENTRATES?LEUKOCYTES REDUCED [Concomitant]
     Active Substance: HUMAN RED BLOOD CELL
     Dosage: 4 IU, UNK
     Route: 065
     Dates: start: 20170510, end: 20170510
  18. CALONAL [Concomitant]
     Active Substance: ACETAMINOPHEN
     Indication: MYELOFIBROSIS
     Dosage: 400 MG, UNK
     Route: 048
     Dates: end: 20170702
  19. HYDREA [Concomitant]
     Active Substance: HYDROXYUREA
     Indication: MYELOFIBROSIS
     Dosage: 1143 MG, UNK
     Route: 048
     Dates: start: 20141211
  20. JAKAVI [Suspect]
     Active Substance: RUXOLITINIB
     Dosage: 25 MG, QD
     Route: 048
     Dates: start: 20150909, end: 20150925
  21. JAKAVI [Suspect]
     Active Substance: RUXOLITINIB
     Indication: MYELOFIBROSIS
     Dosage: 5 MG, QD
     Route: 048
     Dates: start: 20141115, end: 20141128
  22. JAKAVI [Suspect]
     Active Substance: RUXOLITINIB
     Dosage: 12.5 MG, BID
     Route: 048
     Dates: start: 20150207, end: 20150307
  23. JAKAVI [Suspect]
     Active Substance: RUXOLITINIB
     Dosage: 15 MG, BID
     Route: 048
     Dates: start: 20150308, end: 20150908
  24. JAKAVI [Suspect]
     Active Substance: RUXOLITINIB
     Dosage: 10 MG, BID
     Route: 048
     Dates: start: 20150926, end: 20151115
  25. JAKAVI [Suspect]
     Active Substance: RUXOLITINIB
     Dosage: 10 MG, BID
     Route: 048
     Dates: start: 20160629, end: 20170702
  26. HYDREA [Concomitant]
     Active Substance: HYDROXYUREA
     Dosage: 1000 MG, UNK
     Route: 048
     Dates: start: 20150114, end: 20150122
  27. COUMADIN [Concomitant]
     Active Substance: WARFARIN SODIUM
     Indication: PRODUCT USED FOR UNKNOWN INDICATION
     Dosage: UNK
     Route: 005
  28. HEPARIN [Concomitant]
     Active Substance: HEPARIN SODIUM
     Indication: PRODUCT USED FOR UNKNOWN INDICATION
     Dosage: UNK
     Route: 065

REACTIONS (21)
  - Blood pressure increased [Unknown]
  - Herpes zoster [Recovered/Resolved]
  - Swelling [Recovered/Resolved]
  - Headache [Recovered/Resolved]
  - Tumour marker increased [Not Recovered/Not Resolved]
  - Blood alkaline phosphatase increased [Recovered/Resolved]
  - Pulmonary embolism [Recovering/Resolving]
  - Subcutaneous haematoma [Recovered/Resolved]
  - White blood cell count increased [Unknown]
  - Blood alkaline phosphatase increased [Recovered/Resolved]
  - Blood pressure diastolic decreased [Unknown]
  - Spinal cord compression [Recovering/Resolving]
  - Infection [Unknown]
  - Platelet count increased [Unknown]
  - Platelet count decreased [Not Recovered/Not Resolved]
  - Myelofibrosis [Fatal]
  - Dermatitis acneiform [Recovered/Resolved]
  - Anaemia [Not Recovered/Not Resolved]
  - Myeloblast count increased [Fatal]
  - Deep vein thrombosis [Recovering/Resolving]
  - Lymphocyte percentage decreased [Unknown]

NARRATIVE: CASE EVENT DATE: 20141226
